FAERS Safety Report 14590558 (Version 3)
Quarter: 2018Q1

REPORT INFORMATION
  Report Type: Spontaneous
  Country: NL (occurrence: NL)
  Receive Date: 20180302
  Receipt Date: 20180330
  Transmission Date: 20180509
  Serious: Yes (Other)
  Sender: FDA-Public Use
  Company Number: NL-RECORDATI RARE DISEASES INC.-NL-R13005-17-00262

PATIENT
  Age: 16 Year
  Sex: Male
  Weight: 49.3 kg

DRUGS (9)
  1. DACTINOMYCIN [Suspect]
     Active Substance: DACTINOMYCIN
     Indication: EMBRYONAL RHABDOMYOSARCOMA
     Route: 065
  2. ETOPOSIDE. [Suspect]
     Active Substance: ETOPOSIDE
     Indication: EMBRYONAL RHABDOMYOSARCOMA
     Route: 065
  3. IFOSFAMIDE. [Suspect]
     Active Substance: IFOSFAMIDE
     Route: 065
  4. VINCRISTINE [Suspect]
     Active Substance: VINCRISTINE
     Route: 065
  5. VINCRISTINE [Suspect]
     Active Substance: VINCRISTINE
     Indication: EMBRYONAL RHABDOMYOSARCOMA
     Route: 065
  6. CARBOPLATIN. [Suspect]
     Active Substance: CARBOPLATIN
     Indication: EMBRYONAL RHABDOMYOSARCOMA
     Route: 065
  7. VINCRISTINE [Suspect]
     Active Substance: VINCRISTINE
     Route: 065
  8. EPIRUBICIN [Suspect]
     Active Substance: EPIRUBICIN
     Indication: EMBRYONAL RHABDOMYOSARCOMA
     Route: 065
  9. IFOSFAMIDE. [Suspect]
     Active Substance: IFOSFAMIDE
     Indication: EMBRYONAL RHABDOMYOSARCOMA
     Route: 065

REACTIONS (6)
  - Delayed puberty [Unknown]
  - Drug resistance [Unknown]
  - Body height below normal [Unknown]
  - Osteopenia [Unknown]
  - Nervous system disorder [Unknown]
  - Developmental delay [Unknown]

NARRATIVE: CASE EVENT DATE: 2003
